FAERS Safety Report 18081379 (Version 1)
Quarter: 2020Q3

REPORT INFORMATION
  Report Type: Spontaneous
  Country: FR (occurrence: FR)
  Receive Date: 20200728
  Receipt Date: 20200728
  Transmission Date: 20201103
  Serious: Yes (Other)
  Sender: FDA-Public Use
  Company Number: FR-ASTRAZENECA-2020SE90682

PATIENT
  Sex: Female
  Weight: 54 kg

DRUGS (1)
  1. FASLODEX [Suspect]
     Active Substance: FULVESTRANT
     Indication: BREAST CANCER FEMALE
     Route: 030
     Dates: start: 201405

REACTIONS (7)
  - Neuralgia [Unknown]
  - Paraesthesia [Unknown]
  - Burning sensation [Unknown]
  - Injection site pain [Unknown]
  - Neuropathy peripheral [Unknown]
  - Injection site nodule [Unknown]
  - Injection site fibrosis [Unknown]
